FAERS Safety Report 13753372 (Version 1)
Quarter: 2017Q3

REPORT INFORMATION
  Report Type: Spontaneous
  Country: US (occurrence: US)
  Receive Date: 20170714
  Receipt Date: 20170714
  Transmission Date: 20171127
  Serious: Yes (Other)
  Sender: FDA-Public Use
  Company Number: US-VIIV HEALTHCARE LIMITED-US2017104931

PATIENT
  Age: 62 Year
  Sex: Male

DRUGS (4)
  1. SELZENTRY [Suspect]
     Active Substance: MARAVIROC
     Indication: BLOOD HIV RNA INCREASED
  2. EPZICOM [Suspect]
     Active Substance: ABACAVIR SULFATE\LAMIVUDINE
     Indication: HIV INFECTION
     Dosage: UNK UNK, 1D
  3. SELZENTRY [Suspect]
     Active Substance: MARAVIROC
     Indication: HIV INFECTION
     Dosage: 150 MG, BID
     Dates: start: 2011
  4. SELZENTRY [Suspect]
     Active Substance: MARAVIROC
     Indication: COGNITIVE DISORDER

REACTIONS (3)
  - Product storage error [Not Recovered/Not Resolved]
  - Cognitive disorder [Unknown]
  - Blood HIV RNA increased [Unknown]

NARRATIVE: CASE EVENT DATE: 20170701
